FAERS Safety Report 9849714 (Version 2)
Quarter: 2014Q1

REPORT INFORMATION
  Report Type: Spontaneous
  Country: US (occurrence: US)
  Receive Date: 20140128
  Receipt Date: 20140129
  Transmission Date: 20141002
  Serious: No
  Sender: FDA-Public Use
  Company Number: US-PFIZER INC-2014024669

PATIENT
  Sex: Female

DRUGS (1)
  1. CELEBREX [Suspect]
     Dosage: UNK

REACTIONS (4)
  - Hypersensitivity [Not Recovered/Not Resolved]
  - Hepatic enzyme increased [Unknown]
  - Drug hypersensitivity [Unknown]
  - Medication error [Unknown]
